FAERS Safety Report 5467179-4 (Version None)
Quarter: 2007Q3

REPORT INFORMATION
  Report Type: 
  Country: None (occurrence: None)
  Receive Date: 20070925
  Receipt Date: 20070914
  Transmission Date: 20080115
  Serious: Yes (Hospitalization)
  Sender: FDA-Public Use
  Company Number: DE-ROCHE-505406

PATIENT
  Age: 61 Year
  Sex: Male
  Weight: 86.5 kg

DRUGS (14)
  1. CELLCEPT [Suspect]
     Indication: DRUG USE FOR UNKNOWN INDICATION
     Route: 065
     Dates: start: 20070619
  2. CELLCEPT [Suspect]
     Dosage: REDUCED.
     Route: 065
  3. VALGANCICLOVIR HCL [Suspect]
     Route: 048
     Dates: start: 20070702
  4. VALGANCICLOVIR HCL [Suspect]
     Route: 048
  5. SANDIMMUNE [Suspect]
     Indication: DRUG USE FOR UNKNOWN INDICATION
     Route: 065
     Dates: start: 20070628
  6. SANDIMMUNE [Suspect]
     Dosage: REDUCED.
     Route: 065
  7. PRIMAXIN [Concomitant]
     Dates: start: 20070702
  8. DECORTIN [Concomitant]
     Dates: start: 20070702
  9. TORSEMIDE [Concomitant]
     Dates: start: 20070629
  10. RAMIPRIL [Concomitant]
     Dates: start: 20070625
  11. BISOPROLOL [Concomitant]
     Dates: start: 20070623
  12. LOCOL [Concomitant]
     Dates: start: 20070626
  13. FRAXIPARIN [Concomitant]
     Dates: start: 20070619
  14. PANTOPRAZOL [Concomitant]
     Dates: start: 20070619

REACTIONS (1)
  - POLYOMAVIRUS-ASSOCIATED NEPHROPATHY [None]
